FAERS Safety Report 13321616 (Version 1)
Quarter: 2017Q1

REPORT INFORMATION
  Report Type: Spontaneous
  Country: FR (occurrence: FR)
  Receive Date: 20170310
  Receipt Date: 20170310
  Transmission Date: 20170428
  Serious: Yes (Hospitalization, Other)
  Sender: FDA-Public Use
  Company Number: FR-009507513-1703FRA002038

PATIENT
  Age: 82 Year
  Sex: Male

DRUGS (3)
  1. SINEMET L.P. [Suspect]
     Active Substance: CARBIDOPA\LEVODOPA
     Dosage: HALF TABLET, 3 TIMES DAILY
     Route: 048
     Dates: start: 20170225
  2. SINEMET L.P. [Suspect]
     Active Substance: CARBIDOPA\LEVODOPA
     Indication: PARKINSON^S DISEASE
     Dosage: BEFORE HOSPITALIZATION, UNK
     Route: 048
  3. SINEMET L.P. [Suspect]
     Active Substance: CARBIDOPA\LEVODOPA
     Dosage: 1 TABLET IN THE MORNING, 1 TABLET AT MIDDAY, 0.5 TABLET IN THE AFTERNOON
     Route: 048
     Dates: start: 20170224, end: 20170224

REACTIONS (4)
  - Wrong technique in product usage process [Unknown]
  - Paralysis [Unknown]
  - Diarrhoea [Unknown]
  - Off label use [Unknown]

NARRATIVE: CASE EVENT DATE: 20170224
